FAERS Safety Report 7361095-9 (Version None)
Quarter: 2011Q1

REPORT INFORMATION
  Report Type: 
  Country: None (occurrence: None)
  Receive Date: 20110318
  Receipt Date: 20110311
  Transmission Date: 20110831
  Serious: Yes (Disabling)
  Sender: FDA-Public Use
  Company Number: FR-SANOFI-AVENTIS-2011SA008060

PATIENT
  Age: 64 Year
  Sex: Female
  Weight: 85 kg

DRUGS (7)
  1. LANTUS [Suspect]
     Route: 058
     Dates: start: 20040401
  2. TRANXENE [Concomitant]
     Dates: start: 19940101
  3. SSRI [Concomitant]
     Indication: DEPRESSION
     Route: 065
     Dates: start: 19940101
  4. DRUG USED IN DIABETES [Concomitant]
     Dates: start: 20030101
  5. HMG COA REDUCTASE INHIBITORS [Concomitant]
  6. ANTIPSYCHOTICS [Concomitant]
     Dates: start: 19940101
  7. DEPAMIDE [Concomitant]
     Indication: BIPOLAR DISORDER
     Route: 065
     Dates: start: 19940101

REACTIONS (6)
  - FAECAL INCONTINENCE [None]
  - DYSPHAGIA [None]
  - DYSSTASIA [None]
  - GAIT DISTURBANCE [None]
  - URINARY INCONTINENCE [None]
  - NEUROMYOPATHY [None]
